FAERS Safety Report 18330064 (Version 1)
Quarter: 2020Q3

REPORT INFORMATION
  Report Type: Spontaneous
  Country: CN (occurrence: CN)
  Receive Date: 20200930
  Receipt Date: 20200930
  Transmission Date: 20201103
  Serious: Yes (Other)
  Sender: FDA-Public Use
  Company Number: CN-BAXTER-2020BAX019605

PATIENT
  Age: 58 Year
  Sex: Female
  Weight: 54 kg

DRUGS (8)
  1. ENDOXAN [Suspect]
     Active Substance: CYCLOPHOSPHAMIDE
     Indication: B-CELL LYMPHOMA
     Dosage: CYCLOPHOSPHAMIDE + NS 50 ML
     Route: 042
     Dates: start: 20200905, end: 20200905
  2. 0.9% SODIUM CHLORIDE INJECTION [Suspect]
     Active Substance: SODIUM CHLORIDE
     Indication: MEDICATION DILUTION
     Dosage: CYCLOPHOSPHAMIDE + NS
     Route: 042
     Dates: start: 20200905, end: 20200905
  3. 0.9% SODIUM CHLORIDE INJECTION [Suspect]
     Active Substance: SODIUM CHLORIDE
     Dosage: VINCRISTINE SULFATE + NS
     Route: 042
     Dates: start: 20200905, end: 20200905
  4. 5% GLUCOSE  INJECTION [Suspect]
     Active Substance: DEXTROSE
     Indication: MEDICATION DILUTION
     Dosage: PIRARUBICIN HYDROCHLORIDE + 5% GS
     Route: 041
     Dates: start: 20200905, end: 20200905
  5. VINCRISTINE SULFATE. [Suspect]
     Active Substance: VINCRISTINE SULFATE
     Indication: B-CELL LYMPHOMA
     Dosage: VINCRISTINE SULFATE + NS
     Route: 042
     Dates: start: 20200905, end: 20200905
  6. PREDNISONE ACETATE [Suspect]
     Active Substance: PREDNISONE ACETATE
     Indication: B-CELL LYMPHOMA
     Dosage: TABLETS
     Route: 048
     Dates: start: 20200905, end: 20200909
  7. PIRARUBICIN HYDROCHLORIDE [Suspect]
     Active Substance: PIRARUBICIN HYDROCHLORIDE
     Indication: B-CELL LYMPHOMA
     Dosage: PIRARUBICIN HYDROCHLORIDE + 5% GS
     Route: 041
     Dates: start: 20200905, end: 20200905
  8. PEGYLATED RECOMBINANT HUMAN GRANULOCYTE STIMULATOR [Concomitant]
     Indication: PROPHYLAXIS
     Route: 058
     Dates: start: 20200906, end: 20200906

REACTIONS (1)
  - Leukopenia [Recovering/Resolving]

NARRATIVE: CASE EVENT DATE: 20200914
